FAERS Safety Report 5849299-5 (Version None)
Quarter: 2008Q3

REPORT INFORMATION
  Report Type: 
  Country: None (occurrence: None)
  Receive Date: 20080815
  Receipt Date: 20080811
  Transmission Date: 20090109
  Serious: Yes (Other)
  Sender: FDA-Public Use
  Company Number: CHPA2008US13336

PATIENT
  Sex: Female

DRUGS (1)
  1. NODOZ (NCH) (CAFFEINE) CAPLET [Suspect]
     Dosage: 400 MG, ONCE/SINGLE, ORAL
     Route: 048
     Dates: start: 20080811, end: 20080811

REACTIONS (4)
  - DYSPNOEA [None]
  - HYPOAESTHESIA [None]
  - HYPOAESTHESIA FACIAL [None]
  - INCORRECT DOSE ADMINISTERED [None]
